FAERS Safety Report 16248771 (Version 1)
Quarter: 2019Q2

REPORT INFORMATION
  Report Type: Spontaneous
  Country: US (occurrence: US)
  Receive Date: 20190429
  Receipt Date: 20190429
  Transmission Date: 20190711
  Serious: No
  Sender: FDA-Public Use
  Company Number: US-ELI_LILLY_AND_COMPANY-US201904014193

PATIENT
  Sex: Female

DRUGS (4)
  1. HUMALOG [Suspect]
     Active Substance: INSULIN LISPRO
     Dosage: 3 U, LUNCH, WHEN SUGAR WAS HIGH UPTO 5 MORE UNITS
     Route: 065
  2. HUMALOG [Suspect]
     Active Substance: INSULIN LISPRO
     Dosage: 3 U, LUNCH, WHEN SUGAR WAS HIGH UPTO 5 MORE UNITS
     Route: 065
  3. HUMALOG [Suspect]
     Active Substance: INSULIN LISPRO
     Indication: TYPE 2 DIABETES MELLITUS
     Dosage: 3 U, LUNCH, WHEN SUGAR WAS HIGH UPTO 5 MORE UNITS
     Route: 065
  4. HUMALOG [Suspect]
     Active Substance: INSULIN LISPRO
     Dosage: 3 U, LUNCH, WHEN SUGAR WAS HIGH UPTO 5 MORE UNITS
     Route: 065

REACTIONS (10)
  - Feeling abnormal [Unknown]
  - Blood glucose increased [Unknown]
  - Fatigue [Unknown]
  - Incorrect product administration duration [Unknown]
  - Urinary tract infection [Unknown]
  - Weight decreased [Unknown]
  - Depressed mood [Unknown]
  - Memory impairment [Unknown]
  - Blood glucose decreased [Unknown]
  - Injection site bruising [Unknown]
